FAERS Safety Report 7916903-7 (Version None)
Quarter: 2011Q4

REPORT INFORMATION
  Report Type: 
  Country: None (occurrence: None)
  Receive Date: 20111114
  Receipt Date: 20111031
  Transmission Date: 20120403
  Serious: Yes (Death, Life-Threatening)
  Sender: FDA-Public Use
  Company Number: 125761

PATIENT
  Age: 50 Year
  Sex: Male

DRUGS (1)
  1. CERUBIDINE [Suspect]
     Indication: ACUTE MYELOID LEUKAEMIA
     Dosage: 110MG 1X/DAY, IV
     Route: 042
     Dates: start: 20100609, end: 20100611

REACTIONS (8)
  - VERTIGO [None]
  - CARDIAC ARREST [None]
  - BRAIN ABSCESS [None]
  - BRAIN STEM HAEMORRHAGE [None]
  - WHITE BLOOD CELL COUNT DECREASED [None]
  - THROMBOCYTOPENIA [None]
  - BONE MARROW FAILURE [None]
  - COMA [None]
